FAERS Safety Report 9426667 (Version 1)
Quarter: 2013Q3

REPORT INFORMATION
  Report Type: Spontaneous
  Country: US (occurrence: US)
  Receive Date: 20130730
  Receipt Date: 20130730
  Transmission Date: 20140515
  Serious: No
  Sender: FDA-Public Use
  Company Number: US-SANOFI-AVENTIS-2012SA050256

PATIENT
  Age: 61 Year
  Sex: Female

DRUGS (4)
  1. AMBIEN [Suspect]
     Indication: SLEEP DISORDER
     Route: 048
     Dates: start: 201202
  2. LORAZEPAM [Suspect]
     Indication: SOCIAL PROBLEM
     Route: 065
  3. CORTICOSTEROIDS [Concomitant]
     Indication: BACK PAIN
  4. CORTICOSTEROIDS [Concomitant]
     Indication: SPINAL DISORDER

REACTIONS (1)
  - Weight increased [Unknown]
